FAERS Safety Report 5484042-3 (Version None)
Quarter: 2007Q4

REPORT INFORMATION
  Report Type: 
  Country: None (occurrence: None)
  Receive Date: 20071012
  Receipt Date: 20070821
  Transmission Date: 20080405
  Serious: Yes (Death, Hospitalization)
  Sender: FDA-Public Use
  Company Number: US-ROCHE-512913

PATIENT
  Age: 51 Year
  Sex: Female

DRUGS (9)
  1. BUMETANIDE [Suspect]
     Indication: HYPERTENSION
     Route: 048
     Dates: start: 20051001, end: 20070711
  2. DIGOXIN [Suspect]
     Indication: CARDIOMYOPATHY
     Route: 048
     Dates: start: 20051001, end: 20070711
  3. TEMSIROLIMUS [Suspect]
     Indication: METASTATIC RENAL CELL CARCINOMA
     Route: 042
     Dates: start: 20070608, end: 20070706
  4. GUAIFENESIN [Concomitant]
     Indication: DRUG USE FOR UNKNOWN INDICATION
     Route: 065
  5. MORPHINE SULFATE [Concomitant]
     Indication: DRUG USE FOR UNKNOWN INDICATION
     Route: 065
  6. ALPRAZOLAM [Concomitant]
     Indication: DRUG USE FOR UNKNOWN INDICATION
     Route: 065
  7. CARVEDILOL [Concomitant]
     Indication: DRUG USE FOR UNKNOWN INDICATION
     Route: 065
  8. HYDROCODONE [Concomitant]
     Indication: DRUG USE FOR UNKNOWN INDICATION
     Dosage: DRUG REPORTED AS HYDROCODONE BITARTRATE/PARACETAMOL
  9. METOLAZONE [Concomitant]
     Indication: DRUG USE FOR UNKNOWN INDICATION

REACTIONS (3)
  - ASTHENIA [None]
  - DISEASE PROGRESSION [None]
  - DYSPNOEA [None]
